FAERS Safety Report 24112088 (Version 7)
Quarter: 2024Q4

REPORT INFORMATION
  Report Type: Spontaneous
  Country: CA (occurrence: CA)
  Receive Date: 20240719
  Receipt Date: 20241220
  Transmission Date: 20250115
  Serious: Yes (Other)
  Sender: CELLTRION
  Company Number: CA-PFIZER INC-202400088175

PATIENT

DRUGS (11)
  1. INFLECTRA [Suspect]
     Active Substance: INFLIXIMAB-DYYB
     Indication: Crohn^s disease
     Dosage: 740 MG, INDUCTION AT Q EVERY 0,2,6 THEN EVERY 8 WEEKS
     Route: 042
     Dates: start: 20230821, end: 20231101
  2. INFLECTRA [Suspect]
     Active Substance: INFLIXIMAB-DYYB
     Dosage: 10 MG/KG, EVERY 8 WEEKS
     Route: 042
     Dates: start: 20240110
  3. INFLECTRA [Suspect]
     Active Substance: INFLIXIMAB-DYYB
     Dosage: 10 MG/KG, EVERY 8 WEEKS
     Route: 042
     Dates: start: 20240311
  4. INFLECTRA [Suspect]
     Active Substance: INFLIXIMAB-DYYB
     Dosage: 10 MG/KG, EVERY 8 WEEKS
     Route: 042
     Dates: start: 20240501
  5. INFLECTRA [Suspect]
     Active Substance: INFLIXIMAB-DYYB
     Dosage: 848 MG (10 MG/KG), AFTER 10 WEEKS (PRESCRIBED EVERY 8 WEEKS)
     Route: 042
     Dates: start: 20240710
  6. INFLECTRA [Suspect]
     Active Substance: INFLIXIMAB-DYYB
     Dosage: 863 MG, AFTER 14 WEEKS (PRESCRIBED TREATMENTS ARE EVERY 8 WEEKS)
     Route: 042
     Dates: start: 20241016
  7. INFLECTRA [Suspect]
     Active Substance: INFLIXIMAB-DYYB
     Dosage: 863 MG 7 WEEKS 6 DAYS (10 MG/KG, EVERY 8 WEEK)
     Route: 042
     Dates: start: 20241210
  8. DEPAKOTE [Concomitant]
     Active Substance: DIVALPROEX SODIUM
     Dosage: 500 MG
  9. PREDNISONE [Concomitant]
     Active Substance: PREDNISONE
     Dosage: 7.5 MG, TAPERING (1 DF)
  10. TOPAMAX [Concomitant]
     Active Substance: TOPIRAMATE
     Dosage: UNK
  11. TOPIRAMATE [Concomitant]
     Active Substance: TOPIRAMATE
     Dosage: 150 MG

REACTIONS (9)
  - Pyoderma gangrenosum [Recovered/Resolved]
  - Pneumonia [Unknown]
  - Condition aggravated [Recovering/Resolving]
  - Bronchitis [Unknown]
  - Back pain [Unknown]
  - Aphthous ulcer [Recovered/Resolved]
  - Abdominal discomfort [Unknown]
  - Inappropriate schedule of product administration [Unknown]
  - Arthralgia [Not Recovered/Not Resolved]

NARRATIVE: CASE EVENT DATE: 20230101
